FAERS Safety Report 7649448-2 (Version None)
Quarter: 2011Q3

REPORT INFORMATION
  Report Type: 
  Country: None (occurrence: None)
  Receive Date: 20110802
  Receipt Date: 20110726
  Transmission Date: 20111222
  Serious: Yes (Life-Threatening, Hospitalization, Disabling, Other)
  Sender: FDA-Public Use
  Company Number: US-JNJFOC-20110606145

PATIENT
  Age: 89 Year
  Sex: Male

DRUGS (3)
  1. LEVAQUIN [Suspect]
     Indication: URINARY TRACT INFECTION
     Route: 048
     Dates: start: 20110401, end: 20110101
  2. LEVAQUIN [Suspect]
     Indication: INFECTION
     Route: 048
     Dates: start: 20110401, end: 20110101
  3. TETANUS [Suspect]
     Indication: PRODUCT USED FOR UNKNOWN INDICATION
     Route: 065

REACTIONS (7)
  - DYSPHAGIA [None]
  - ASTHENIA [None]
  - RESPIRATORY FAILURE [None]
  - SPEECH DISORDER [None]
  - MUSCLE CONTRACTIONS INVOLUNTARY [None]
  - SELF-MEDICATION [None]
  - MUSCULAR WEAKNESS [None]
